FAERS Safety Report 14783527 (Version 1)
Quarter: 2018Q2

REPORT INFORMATION
  Report Type: Spontaneous
  Country: US (occurrence: US)
  Receive Date: 20180420
  Receipt Date: 20180420
  Transmission Date: 20180711
  Serious: No
  Sender: FDA-Public Use
  Company Number: US-TEVA-2018-US-871890

PATIENT
  Sex: Male

DRUGS (3)
  1. MORPHINE SULFATE. [Suspect]
     Active Substance: MORPHINE SULFATE
     Indication: NECK PAIN
     Dates: start: 2017
  2. MORPHINE SULFATE. [Suspect]
     Active Substance: MORPHINE SULFATE
     Indication: BACK PAIN
  3. OXYCODONE HYDROCHLORIDE. [Suspect]
     Active Substance: OXYCODONE HYDROCHLORIDE
     Indication: MYALGIA
     Dates: start: 2005

REACTIONS (5)
  - Anxiety [Not Recovered/Not Resolved]
  - Tension [Not Recovered/Not Resolved]
  - Drug intolerance [Not Recovered/Not Resolved]
  - Insomnia [Not Recovered/Not Resolved]
  - Drug hypersensitivity [Not Recovered/Not Resolved]
